FAERS Safety Report 4950097-5 (Version None)
Quarter: 2006Q1

REPORT INFORMATION
  Report Type: 
  Country: None (occurrence: None)
  Receive Date: 20060320
  Receipt Date: 20060320
  Transmission Date: 20060701
  Serious: Yes (Other)
  Sender: FDA-Public Use
  Company Number: None

PATIENT
  Sex: Male
  Weight: 11.7935 kg

DRUGS (2)
  1. CISAPRIDE [Suspect]
     Indication: IMPAIRED GASTRIC EMPTYING
     Dosage: 1.2   TWICE PER DAY   OTHER
     Route: 050
     Dates: start: 20041001, end: 20050310
  2. CISAPRIDE [Suspect]
     Indication: VOMITING
     Dosage: 1.2   TWICE PER DAY   OTHER
     Route: 050
     Dates: start: 20041001, end: 20050310

REACTIONS (1)
  - PARKINSONIAN REST TREMOR [None]
